FAERS Safety Report 20662014 (Version 1)
Quarter: 2022Q2

REPORT INFORMATION
  Report Type: Spontaneous
  Country: CA (occurrence: CA)
  Receive Date: 20220401
  Receipt Date: 20220401
  Transmission Date: 20220721
  Serious: Yes (Other)
  Sender: FDA-Public Use
  Company Number: CA-JNJFOC-20220362413

PATIENT
  Age: 35 Year
  Sex: Male
  Weight: 80 kg

DRUGS (3)
  1. REMICADE [Suspect]
     Active Substance: INFLIXIMAB
     Indication: Colitis ulcerative
     Route: 042
  2. METHOTREXATE [Concomitant]
     Active Substance: METHOTREXATE
     Indication: Colitis ulcerative
  3. TRAMADOL [Concomitant]
     Active Substance: TRAMADOL

REACTIONS (3)
  - Injection site discomfort [Unknown]
  - Malaise [Unknown]
  - Nausea [Unknown]
